FAERS Safety Report 8140687-3 (Version None)
Quarter: 2012Q1

REPORT INFORMATION
  Report Type: 
  Country: None (occurrence: None)
  Receive Date: 20120216
  Receipt Date: 20120208
  Transmission Date: 20120608
  Serious: Yes (Other)
  Sender: FDA-Public Use
  Company Number: US-US-EMD SERONO, INC.-7112133

PATIENT
  Sex: Female

DRUGS (1)
  1. NOVANTRONE [Suspect]
     Indication: MULTIPLE SCLEROSIS

REACTIONS (8)
  - CARDIAC OUTPUT DECREASED [None]
  - HEART RATE DECREASED [None]
  - BONE PAIN [None]
  - SYNCOPE [None]
  - WEIGHT DECREASED [None]
  - DYSPNOEA [None]
  - OEDEMA PERIPHERAL [None]
  - RASH [None]
